FAERS Safety Report 20669796 (Version 1)
Quarter: 2022Q2

REPORT INFORMATION
  Report Type: Report from Study
  Country: IL (occurrence: IL)
  Receive Date: 20220404
  Receipt Date: 20220404
  Transmission Date: 20220720
  Serious: Yes (Other)
  Sender: FDA-Public Use
  Company Number: IL-NOVARTISPH-NVSC2021IL209440

PATIENT
  Age: 82 Year
  Sex: Male

DRUGS (6)
  1. CAPMATINIB [Suspect]
     Active Substance: CAPMATINIB
     Indication: Non-small cell lung cancer
     Dosage: (2X200MG) BID
     Route: 065
  2. CAPMATINIB [Suspect]
     Active Substance: CAPMATINIB
     Dosage: (1X200MG) BID
     Route: 065
  3. CAPMATINIB [Suspect]
     Active Substance: CAPMATINIB
     Dosage: UNK (150MGX2)
     Route: 065
  4. CAPMATINIB [Suspect]
     Active Substance: CAPMATINIB
     Dosage: (200 MG MORNING, 100 MG EVENING)
     Route: 065
     Dates: start: 202104
  5. CAPMATINIB [Suspect]
     Active Substance: CAPMATINIB
     Dosage: 150 MG, BID
     Route: 065
  6. CAPMATINIB [Suspect]
     Active Substance: CAPMATINIB
     Dosage: 150 MG
     Route: 065

REACTIONS (12)
  - Metastasis [Unknown]
  - Radiation necrosis [Unknown]
  - Lung consolidation [Unknown]
  - Central nervous system lesion [Unknown]
  - Brain oedema [Unknown]
  - Blood creatinine increased [Unknown]
  - Renal failure [Unknown]
  - Oedema [Recovering/Resolving]
  - Oedema peripheral [Unknown]
  - Generalised oedema [Unknown]
  - Hypertension [Unknown]
  - Gait disturbance [Unknown]
